FAERS Safety Report 8512029-2 (Version None)
Quarter: 2012Q3

REPORT INFORMATION
  Report Type: 
  Country: None (occurrence: None)
  Receive Date: 20120716
  Receipt Date: 20120706
  Transmission Date: 20120928
  Serious: Yes (Death, Hospitalization, Other)
  Sender: FDA-Public Use
  Company Number: US-BAYER-2011-079599

PATIENT
  Age: 27 Year
  Sex: Female

DRUGS (8)
  1. PERCOCET [Concomitant]
     Indication: PAIN
  2. YAZ [Suspect]
     Dosage: UNK
     Dates: start: 20080601, end: 20090201
  3. ATIVAN [Concomitant]
     Indication: ANXIETY
  4. PERCOCET [Concomitant]
     Indication: BIOPSY BONE MARROW
  5. DOXYCYCLINE [Concomitant]
     Dosage: 100 MG, UNK
     Dates: start: 20081107
  6. CHERATUSSIN AC [Concomitant]
     Dosage: 100-10 MG/5
     Dates: start: 20081107
  7. CYTOXAN [Concomitant]
  8. AZITHROMYCIN [Concomitant]
     Dosage: UNK
     Dates: start: 20081201

REACTIONS (10)
  - LEUKAEMIA [None]
  - THROMBOSIS [None]
  - GENERAL PHYSICAL HEALTH DETERIORATION [None]
  - EMOTIONAL DISTRESS [None]
  - INJURY [None]
  - ANHEDONIA [None]
  - MULTI-ORGAN FAILURE [None]
  - PAIN [None]
  - DEEP VEIN THROMBOSIS [None]
  - ANXIETY [None]
